FAERS Safety Report 14407382 (Version 1)
Quarter: 2018Q1

REPORT INFORMATION
  Report Type: Spontaneous
  Country: TR (occurrence: TR)
  Receive Date: 20180118
  Receipt Date: 20180118
  Transmission Date: 20180509
  Serious: Yes (Death)
  Sender: FDA-Public Use
  Company Number: TR-ROCHE-2058182

PATIENT
  Age: 79 Year
  Sex: Male

DRUGS (2)
  1. OMALIZUMAB. [Suspect]
     Active Substance: OMALIZUMAB
     Indication: PEMPHIGOID
     Dosage: (1 CYCLE)
     Route: 058
  2. CLOBETASOL PROPIONATE. [Concomitant]
     Active Substance: CLOBETASOL PROPIONATE
     Indication: PEMPHIGOID
     Route: 061

REACTIONS (2)
  - Myocardial infarction [Fatal]
  - Product use in unapproved indication [Unknown]
